FAERS Safety Report 6676828-4 (Version None)
Quarter: 2010Q2

REPORT INFORMATION
  Report Type: 
  Country: None (occurrence: None)
  Receive Date: 20100412
  Receipt Date: 20100331
  Transmission Date: 20101027
  Serious: Yes (Other)
  Sender: FDA-Public Use
  Company Number: DE-ROCHE-696037

PATIENT
  Sex: Male
  Weight: 88 kg

DRUGS (4)
  1. ROACTEMRA [Suspect]
     Indication: RHEUMATOID ARTHRITIS
     Route: 042
     Dates: start: 20081101, end: 20091201
  2. METHOTREXAT [Concomitant]
     Indication: RHEUMATOID ARTHRITIS
     Route: 058
     Dates: start: 20090601, end: 20100301
  3. ARCOXIA [Concomitant]
     Indication: RHEUMATOID ARTHRITIS
     Route: 048
     Dates: start: 20081101, end: 20100301
  4. PANTOPRAZOL [Concomitant]
     Route: 048
     Dates: start: 20081101, end: 20100301

REACTIONS (2)
  - ANAEMIA [None]
  - THROMBOCYTOPENIA [None]
